FAERS Safety Report 4757831-8 (Version None)
Quarter: 2005Q3

REPORT INFORMATION
  Report Type: 
  Country: None (occurrence: None)
  Receive Date: 20050830
  Receipt Date: 20050817
  Transmission Date: 20060218
  Serious: Yes (Hospitalization)
  Sender: FDA-Public Use
  Company Number: HQWYE028919AUG05

PATIENT
  Age: 32 Year
  Sex: Male

DRUGS (9)
  1. RAPAMUNE [Suspect]
     Indication: PROPHYLAXIS AGAINST TRANSPLANT REJECTION
     Dosage: SEE IMAGE
     Route: 048
     Dates: start: 20031223, end: 20050717
  2. RAPAMUNE [Suspect]
     Indication: PROPHYLAXIS AGAINST TRANSPLANT REJECTION
     Dosage: SEE IMAGE
     Route: 048
     Dates: start: 20050718
  3. MYCOPHENOLATE MOFETIL (MYCOPHENOLATE MOFETIL) [Concomitant]
  4. PREDNISONE [Concomitant]
  5. CAPTOPRIL [Concomitant]
  6. RIFAMPICIN [Concomitant]
  7. ISONIAZID [Concomitant]
  8. ETHAMBUTOL (ETHAMBUTOL) [Concomitant]
  9. PYRAZINAMIDE [Concomitant]

REACTIONS (4)
  - DIARRHOEA [None]
  - PNEUMONIA [None]
  - PYREXIA [None]
  - VOMITING [None]
